FAERS Safety Report 11394378 (Version 1)
Quarter: 2015Q3

REPORT INFORMATION
  Report Type: Spontaneous
  Country: US (occurrence: US)
  Receive Date: 20150819
  Receipt Date: 20150819
  Transmission Date: 20151125
  Serious: Yes (Other)
  Sender: FDA-Public Use
  Company Number: US-HOSPIRA-1677261

PATIENT
  Age: 57 Year
  Sex: Male
  Weight: 70.3 kg

DRUGS (3)
  1. LIDOCAINE HYDROCHLORIDE. [Suspect]
     Active Substance: LIDOCAINE HYDROCHLORIDE
     Indication: LOCAL ANAESTHESIA
     Dosage: 2.5ML, ONCE
     Route: 058
     Dates: start: 20130404, end: 20130404
  2. RIFAMYCIN SODIUM [Concomitant]
     Active Substance: RIFAMYCIN SODIUM
     Indication: SMALL INTESTINAL BACTERIAL OVERGROWTH
     Dosage: NOT REPORTED, NOT REPORTED
     Route: 065
  3. SODIUM HYDROGEN CARBONATE [Suspect]
     Active Substance: SODIUM BICARBONATE
     Indication: MEDICATION DILUTION
     Dosage: 0.5ML, ONCE
     Route: 058
     Dates: start: 20130402, end: 20130402

REACTIONS (3)
  - Injection site pain [Not Recovered/Not Resolved]
  - Injection site necrosis [Not Recovered/Not Resolved]
  - Ischaemia [Not Recovered/Not Resolved]

NARRATIVE: CASE EVENT DATE: 20130404
